FAERS Safety Report 14318037 (Version 1)
Quarter: 2017Q4

REPORT INFORMATION
  Report Type: Spontaneous
  Country: GB (occurrence: GB)
  Receive Date: 20171222
  Receipt Date: 20171222
  Transmission Date: 20180321
  Serious: Yes (Hospitalization)
  Sender: FDA-Public Use
  Company Number: GB-AUROBINDO-AUR-APL-2017-46435

PATIENT
  Age: 82 Year
  Sex: Female

DRUGS (10)
  1. LANSOPRAZOLE. [Concomitant]
     Active Substance: LANSOPRAZOLE
     Indication: PRODUCT USED FOR UNKNOWN INDICATION
  2. CLOPIDOGREL [Concomitant]
     Active Substance: CLOPIDOGREL BISULFATE
     Indication: PRODUCT USED FOR UNKNOWN INDICATION
     Route: 065
  3. HYDROXOCOBALAMIN [Concomitant]
     Active Substance: HYDROXOCOBALAMIN
     Indication: PRODUCT USED FOR UNKNOWN INDICATION
     Route: 065
  4. COCODAMOL [Concomitant]
     Active Substance: ACETAMINOPHEN\CODEINE PHOSPHATE
     Indication: PRODUCT USED FOR UNKNOWN INDICATION
     Route: 065
  5. TRIMETHOPRIM. [Concomitant]
     Active Substance: TRIMETHOPRIM
     Indication: PRODUCT USED FOR UNKNOWN INDICATION
     Route: 065
  6. GLYCERYL TRINITRATE [Concomitant]
     Active Substance: NITROGLYCERIN
     Indication: PRODUCT USED FOR UNKNOWN INDICATION
     Route: 065
  7. CEFALEXIN [Concomitant]
     Active Substance: CEPHALEXIN
     Indication: PRODUCT USED FOR UNKNOWN INDICATION
     Route: 065
  8. BISOPROLOL [Suspect]
     Active Substance: BISOPROLOL
     Indication: MYOCARDIAL ISCHAEMIA
     Dosage: IN THE MORNING
     Route: 048
     Dates: end: 20170715
  9. RAMIPRIL. [Suspect]
     Active Substance: RAMIPRIL
     Indication: MYOCARDIAL ISCHAEMIA
     Dosage: 2.5 MG, UNK
     Route: 048
     Dates: end: 20170715
  10. ATORVASTATIN [Concomitant]
     Active Substance: ATORVASTATIN
     Indication: PRODUCT USED FOR UNKNOWN INDICATION
     Route: 065

REACTIONS (5)
  - Acute kidney injury [Recovered/Resolved with Sequelae]
  - Orthostatic hypotension [Recovered/Resolved]
  - Bradycardia [Recovered/Resolved]
  - Lethargy [Unknown]
  - Dizziness [Unknown]

NARRATIVE: CASE EVENT DATE: 20170715
